FAERS Safety Report 7784617-2 (Version None)
Quarter: 2011Q3

REPORT INFORMATION
  Report Type: 
  Country: None (occurrence: None)
  Receive Date: 20110928
  Receipt Date: 20110920
  Transmission Date: 20111222
  Serious: Yes (Other)
  Sender: FDA-Public Use
  Company Number: US-PERRIGO-11US007888

PATIENT
  Sex: Male
  Weight: 6.349 kg

DRUGS (2)
  1. ACETAMINOPHEN CHERRY 100 MG/ML 008 [Suspect]
     Indication: TEETHING
     Dosage: UNK, ONCE
     Route: 048
     Dates: start: 20110918, end: 20110918
  2. ACETAMINOPHEN CHERRY 100 MG/ML 008 [Suspect]
     Indication: ACCIDENTAL EXPOSURE
     Dosage: UNK
     Route: 048

REACTIONS (2)
  - NO ADVERSE EVENT [None]
  - ACCIDENTAL EXPOSURE [None]
